FAERS Safety Report 8613412 (Version 2)
Quarter: 2013Q2

REPORT INFORMATION
  Report Type: Spontaneous
  Country: US (occurrence: None)
  Receive Date: 20120530
  Receipt Date: 20130628
  Transmission Date: 20140414
  Serious: Yes (Hospitalization, Other)
  Sender: FDA-Public Use
  Company Number: AUR-APL-2012-02325

PATIENT
  Age: 63 Year
  Sex: Female

DRUGS (1)
  1. LEVOFLOXACIN [Suspect]
     Indication: CYSTITIS HAEMORRHAGIC

REACTIONS (9)
  - PYREXIA [None]
  - CEREBRAL CALCIFICATION [None]
  - CENTRAL NERVOUS SYSTEM LESION [None]
  - CEREBRAL SMALL VESSEL ISCHAEMIC DISEASE [None]
  - CSF GLUCOSE INCREASED [None]
  - WHITE BLOOD CELL COUNT INCREASED [None]
  - STATUS EPILEPTICUS [None]
  - RENAL FAILURE [None]
  - NEUROTOXICITY [None]
